FAERS Safety Report 12601804 (Version 1)
Quarter: 2016Q3

REPORT INFORMATION
  Report Type: Other
  Country: JP (occurrence: JP)
  Receive Date: 20160728
  Receipt Date: 20160728
  Transmission Date: 20161109
  Serious: Yes (Hospitalization)
  Sender: FDA-Public Use
  Company Number: JP-LUPIN PHARMACEUTICALS INC.-2016-03305

PATIENT
  Sex: Female
  Weight: 3.56 kg

DRUGS (6)
  1. SERTRALINE [Suspect]
     Active Substance: SERTRALINE HYDROCHLORIDE
     Indication: MENTAL DISORDER
     Route: 064
  2. ETIZOLAM [Concomitant]
     Active Substance: ETIZOLAM
     Indication: MENTAL DISORDER
     Route: 064
  3. PAROXETINE HYDROCHLORIDE. [Suspect]
     Active Substance: PAROXETINE HYDROCHLORIDE
     Indication: MENTAL DISORDER
     Route: 064
  4. VALPROIC ACID. [Concomitant]
     Active Substance: VALPROIC ACID
     Indication: MENTAL DISORDER
     Route: 064
  5. BROMAZEPAM [Concomitant]
     Active Substance: BROMAZEPAM
     Indication: MENTAL DISORDER
     Route: 064
  6. RISPERIDONE. [Suspect]
     Active Substance: RISPERIDONE
     Indication: MENTAL DISORDER
     Route: 064

REACTIONS (8)
  - Respiratory depression [Recovered/Resolved]
  - Resting tremor [Recovered/Resolved]
  - Hypotonia [Recovered/Resolved]
  - Irritability [Recovered/Resolved]
  - Foetal exposure during pregnancy [Unknown]
  - Seizure [Recovered/Resolved]
  - Drug withdrawal syndrome [Recovered/Resolved]
  - Somnolence [Recovered/Resolved]
